FAERS Safety Report 15431321 (Version 1)
Quarter: 2018Q3

REPORT INFORMATION
  Report Type: Spontaneous
  Country: US (occurrence: US)
  Receive Date: 20180921
  Receipt Date: 20180921
  Transmission Date: 20181010
  Serious: Yes (Hospitalization)
  Sender: FDA-Public Use
  Company Number: None

PATIENT
  Sex: Male

DRUGS (22)
  1. ACIDOPHILUS [Concomitant]
     Active Substance: LACTOBACILLUS ACIDOPHILUS
  2. LANTUS [Concomitant]
     Active Substance: INSULIN GLARGINE
  3. NIFEDIPINE. [Concomitant]
     Active Substance: NIFEDIPINE
  4. TACROLIMUS. [Suspect]
     Active Substance: TACROLIMUS
     Indication: RENAL TRANSPLANT
     Route: 048
     Dates: start: 20180727
  5. BD PEN NEEDL [Concomitant]
  6. CARVEDILOL. [Concomitant]
     Active Substance: CARVEDILOL
  7. CICLOPIROX. [Concomitant]
     Active Substance: CICLOPIROX
  8. GABAPENTIN. [Concomitant]
     Active Substance: GABAPENTIN
  9. TACROLIMUS. [Suspect]
     Active Substance: TACROLIMUS
     Indication: RENAL TRANSPLANT
     Route: 048
     Dates: start: 20180727
  10. METOLAZONE. [Concomitant]
     Active Substance: METOLAZONE
  11. PREDNISONE. [Concomitant]
     Active Substance: PREDNISONE
  12. PANTOPRAZOLE [Concomitant]
     Active Substance: PANTOPRAZOLE
  13. POT CHLORIDE [Concomitant]
     Active Substance: POTASSIUM CHLORIDE
  14. PROGRAF [Concomitant]
     Active Substance: TACROLIMUS\TACROLIMUS ANHYDROUS
  15. TORSEMIDE. [Concomitant]
     Active Substance: TORSEMIDE
  16. ACCU?CHEK [Concomitant]
  17. FUROSEMIDE. [Concomitant]
     Active Substance: FUROSEMIDE
  18. MYFORTIC [Concomitant]
     Active Substance: MYCOPHENOLATE SODIUM
  19. TAMSULOSIN [Concomitant]
     Active Substance: TAMSULOSIN
  20. LIVALO [Concomitant]
     Active Substance: PITAVASTATIN CALCIUM
  21. NOVOLOG [Concomitant]
     Active Substance: INSULIN ASPART
  22. ONETOUCH [Concomitant]

REACTIONS (1)
  - Pneumonia [None]
